FAERS Safety Report 6662355-7 (Version None)
Quarter: 2010Q1

REPORT INFORMATION
  Report Type: 
  Country: None (occurrence: None)
  Receive Date: 20100331
  Receipt Date: 20100108
  Transmission Date: 20100710
  Serious: No
  Sender: FDA-Public Use
  Company Number: US-ABBOTT-10P-163-0619016-00

PATIENT
  Age: 41 Year
  Sex: Female

DRUGS (3)
  1. LUPRON DEPOT [Suspect]
     Indication: UTERINE LEIOMYOMA
     Route: 050
     Dates: start: 20090101, end: 20090101
  2. LUPRON DEPOT [Suspect]
     Route: 050
     Dates: start: 20081101, end: 20081101
  3. LUPRON DEPOT [Suspect]
     Dosage: ONLY RECIEVED THREE INJECTIONS TOTAL
     Route: 050
     Dates: start: 20080901, end: 20080901

REACTIONS (1)
  - LUMBOSACRAL PLEXUS INJURY [None]
